FAERS Safety Report 8625055-X (Version None)
Quarter: 2012Q3

REPORT INFORMATION
  Report Type: 
  Country: None (occurrence: None)
  Receive Date: 20120827
  Receipt Date: 20120816
  Transmission Date: 20120928
  Serious: Yes (Hospitalization, Other)
  Sender: FDA-Public Use
  Company Number: FR-ASTRAZENECA-2012SE60174

PATIENT
  Age: 47 Year
  Sex: Male

DRUGS (18)
  1. PREVISCAN [Concomitant]
  2. METHOTREXATE SODIUM [Concomitant]
  3. POTASSIUM CHLORIDE [Concomitant]
  4. PREDNISOLONE [Suspect]
     Route: 048
     Dates: start: 20120608
  5. KINERET [Concomitant]
     Dates: start: 20110901
  6. NEXIUM [Suspect]
     Route: 048
  7. KINERET [Concomitant]
     Indication: JUVENILE ARTHRITIS
     Dates: start: 20111101
  8. KINERET [Concomitant]
     Dates: start: 20090401, end: 20091101
  9. CACIT D3 [Concomitant]
  10. ASPIRIN [Concomitant]
  11. CYCLOPHOSPHAMIDE [Suspect]
     Route: 042
     Dates: start: 20120608
  12. PREDNISONE TAB [Concomitant]
  13. DOXORUBICIN HCL [Suspect]
     Route: 042
     Dates: start: 20120611, end: 20120710
  14. MABTHERA [Suspect]
     Route: 042
     Dates: start: 20120611
  15. VINCRISTINE [Suspect]
     Route: 042
     Dates: start: 20120608
  16. ACETAMINOPHEN [Concomitant]
  17. ACETAMINOPHEN W/ CODEINE [Concomitant]
  18. ALENDRONATE SODIUM/CHOLECALCIFEROL [Concomitant]

REACTIONS (4)
  - CONGESTIVE CARDIOMYOPATHY [None]
  - EPSTEIN-BARR VIRUS ASSOCIATED LYMPHOMA [None]
  - RESPIRATORY TRACT INFECTION BACTERIAL [None]
  - SYSTOLIC DYSFUNCTION [None]
